FAERS Safety Report 5237433-X (Version None)
Quarter: 2007Q1

REPORT INFORMATION
  Report Type: 
  Country: None (occurrence: None)
  Receive Date: 20070213
  Receipt Date: 20070208
  Transmission Date: 20070707
  Serious: Yes (Other)
  Sender: FDA-Public Use
  Company Number: FI-PFIZER INC-2007010761

PATIENT
  Age: 81 Year
  Sex: Female

DRUGS (2)
  1. CELEBRA [Suspect]
     Indication: PAIN
     Route: 048
  2. ANTI-PARKINSON AGENTS [Concomitant]
     Indication: PARKINSON'S DISEASE

REACTIONS (3)
  - DYSARTHRIA [None]
  - FATIGUE [None]
  - HALLUCINATION [None]
